FAERS Safety Report 13347564 (Version 1)
Quarter: 2017Q1

REPORT INFORMATION
  Report Type: Spontaneous
  Country: US (occurrence: US)
  Receive Date: 20170317
  Receipt Date: 20170317
  Transmission Date: 20170428
  Serious: No
  Sender: FDA-Public Use
  Company Number: US-BRISTOL-MYERS SQUIBB COMPANY-BMS-2017-015965

PATIENT
  Sex: Male
  Weight: 84.81 kg

DRUGS (1)
  1. ELIQUIS [Suspect]
     Active Substance: APIXABAN
     Indication: CEREBROVASCULAR ACCIDENT PROPHYLAXIS
     Dosage: 5 MG, BID
     Route: 065

REACTIONS (6)
  - Weight increased [Unknown]
  - Muscular weakness [Unknown]
  - Eating disorder [Unknown]
  - Dysuria [Unknown]
  - Fluid retention [Unknown]
  - Gastric disorder [Unknown]
